APPROVED DRUG PRODUCT: PERIOCHIP
Active Ingredient: CHLORHEXIDINE GLUCONATE
Strength: 2.5MG
Dosage Form/Route: TABLET;DENTAL
Application: N020774 | Product #001
Applicant: DEXCEL PHARMA TECHNOLOGIES LTD
Approved: May 15, 1998 | RLD: Yes | RS: No | Type: DISCN